FAERS Safety Report 17134319 (Version 3)
Quarter: 2020Q1

REPORT INFORMATION
  Report Type: Report from Study
  Country: US (occurrence: US)
  Receive Date: 20191210
  Receipt Date: 20200127
  Transmission Date: 20200409
  Serious: Yes (Hospitalization, Other)
  Sender: FDA-Public Use
  Company Number: US-R-PHARM US LLC-2019RPM00021

PATIENT
  Age: 71 Year
  Sex: Female
  Weight: 120.5 kg

DRUGS (10)
  1. LIPITOR [Concomitant]
     Active Substance: ATORVASTATIN CALCIUM
     Dosage: 20 MG, 1X/DAY
     Route: 048
     Dates: start: 2014
  2. WELLBUTRIN XL [Concomitant]
     Active Substance: BUPROPION HYDROCHLORIDE
     Dosage: 150 MG, 1X/DAY
     Route: 048
     Dates: start: 2013
  3. ADVAIR DISKUS INHALER [Concomitant]
     Dosage: UNK, 2X/DAY
     Dates: start: 2009
  4. IXABEPILONE [Suspect]
     Active Substance: IXABEPILONE
     Dosage: 32 MG; ^C2 D 15^
     Route: 042
     Dates: start: 2019, end: 20191121
  5. MELATONIN [Concomitant]
     Active Substance: MELATONIN
     Dosage: 6 MG, 1X/DAY AT BEDTIME
     Dates: start: 20190912
  6. IXABEPILONE [Suspect]
     Active Substance: IXABEPILONE
     Indication: OVARIAN CANCER
     Dosage: 40 MG;  ^C1, C2D1, 8^
     Route: 042
     Dates: start: 20191003, end: 2019
  7. NORVASC [Concomitant]
     Active Substance: AMLODIPINE BESYLATE
     Dosage: 10 MG, 1X/DAY
     Route: 048
     Dates: start: 2009
  8. PROZAC [Concomitant]
     Active Substance: FLUOXETINE HYDROCHLORIDE
     Dosage: 40 MG, 1X/DAY
     Dates: start: 2015
  9. ZANTAC [Concomitant]
     Active Substance: RANITIDINE HYDROCHLORIDE
     Dosage: 150 MG, 2X/DAY
     Route: 048
     Dates: start: 2012
  10. PROVENTIL HFA [Concomitant]
     Active Substance: ALBUTEROL SULFATE
     Dosage: UNK, AS NEEDED
     Dates: start: 2009

REACTIONS (11)
  - Acute kidney injury [Not Recovered/Not Resolved]
  - Renal cyst [Unknown]
  - Abdominal compartment syndrome [Not Recovered/Not Resolved]
  - Night sweats [Unknown]
  - Retching [Unknown]
  - Cholecystitis acute [Recovering/Resolving]
  - Ascites [Not Recovered/Not Resolved]
  - Renal tubular necrosis [Not Recovered/Not Resolved]
  - Malaise [Unknown]
  - Off label use [Recovered/Resolved]
  - Hypophagia [Unknown]

NARRATIVE: CASE EVENT DATE: 2019
